FAERS Safety Report 5103625-3 (Version None)
Quarter: 2006Q3

REPORT INFORMATION
  Report Type: 
  Country: None (occurrence: None)
  Receive Date: 20060913
  Receipt Date: 20060306
  Transmission Date: 20061208
  Serious: Yes (Hospitalization, Disabling, Other)
  Sender: FDA-Public Use
  Company Number: US-GILEAD-2006-0009297

PATIENT
  Age: 50 Year
  Sex: Female
  Weight: 55.842 kg

DRUGS (5)
  1. TRUVADA [Suspect]
     Indication: HIV INFECTION
     Dates: start: 20050210
  2. VIREAD [Suspect]
     Indication: HIV INFECTION
  3. REYATAZ [Concomitant]
     Indication: HIV INFECTION
  4. NORVIR [Concomitant]
     Indication: HIV INFECTION
  5. EPIVIR [Concomitant]
     Indication: HIV INFECTION

REACTIONS (17)
  - ABASIA [None]
  - CEREBRAL TOXOPLASMOSIS [None]
  - CEREBROVASCULAR ACCIDENT [None]
  - CRYING [None]
  - DEHYDRATION [None]
  - DEMENTIA [None]
  - DEPRESSION [None]
  - DIZZINESS [None]
  - FALL [None]
  - GASTROENTERITIS VIRAL [None]
  - HEADACHE [None]
  - NIGHTMARE [None]
  - SPEECH DISORDER [None]
  - TOOTH INJURY [None]
  - VISUAL ACUITY REDUCED [None]
  - VOMITING [None]
  - WEIGHT DECREASED [None]
